FAERS Safety Report 20245970 (Version 1)
Quarter: 2021Q4

REPORT INFORMATION
  Report Type: Report from Study
  Country: IT (occurrence: IT)
  Receive Date: 20211229
  Receipt Date: 20211229
  Transmission Date: 20220303
  Serious: Yes (Other)
  Sender: FDA-Public Use
  Company Number: IT-KOREA IPSEN Pharma-2021-32981

PATIENT

DRUGS (5)
  1. LANREOTIDE ACETATE [Suspect]
     Active Substance: LANREOTIDE ACETATE
     Indication: Neuroendocrine carcinoma metastatic
     Dosage: NOT REPORTED
     Route: 065
  2. TEMOZOLOMIDE [Suspect]
     Active Substance: TEMOZOLOMIDE
     Indication: Neuroendocrine carcinoma metastatic
     Dosage: FIRST CYCLE
     Route: 065
  3. TEMOZOLOMIDE [Suspect]
     Active Substance: TEMOZOLOMIDE
     Dosage: FOLLOWING CYCLES: ONCE DAILY FROM DAYS  10-14, EVERY 28 DAYS
     Route: 065
  4. CAPECITABINE [Suspect]
     Active Substance: CAPECITABINE
     Indication: Neuroendocrine carcinoma metastatic
     Dosage: 750 MG/M2 TWICE DAILY FROM DAYS 1-14
     Route: 048
  5. ONDANSETRON [Concomitant]
     Active Substance: ONDANSETRON
     Indication: Prophylaxis
     Dosage: 30 MINS BEFORE TEM
     Route: 065

REACTIONS (15)
  - Disease progression [Unknown]
  - Neutropenia [Unknown]
  - Thrombocytopenia [Unknown]
  - Anaemia [Unknown]
  - Headache [Unknown]
  - Palmar-plantar erythrodysaesthesia syndrome [Unknown]
  - Nausea [Unknown]
  - Vomiting [Unknown]
  - Myalgia [Unknown]
  - Pyrexia [Unknown]
  - Diarrhoea [Unknown]
  - Blood creatinine increased [Unknown]
  - Hypertransaminasaemia [Unknown]
  - Blood alkaline phosphatase increased [Unknown]
  - Fatigue [Unknown]
